FAERS Safety Report 8510845-4 (Version None)
Quarter: 2012Q3

REPORT INFORMATION
  Report Type: 
  Country: None (occurrence: None)
  Receive Date: 20120716
  Receipt Date: 20120703
  Transmission Date: 20120928
  Serious: Yes (Other)
  Sender: FDA-Public Use
  Company Number: US-ELI_LILLY_AND_COMPANY-US201207001632

PATIENT
  Sex: Female

DRUGS (3)
  1. HUMULIN N [Suspect]
     Indication: DIABETES MELLITUS
     Dosage: 28 U, UNKNOWN
  2. METFORMIN HYDROCHLORIDE [Concomitant]
  3. LANTUS [Concomitant]
     Indication: DIABETES MELLITUS

REACTIONS (3)
  - GLAUCOMA [None]
  - VISUAL ACUITY REDUCED [None]
  - BLINDNESS [None]
